FAERS Safety Report 9216608 (Version 2)
Quarter: 2013Q1

REPORT INFORMATION
  Report Type: Spontaneous
  Country: US (occurrence: None)
  Receive Date: 20130131
  Receipt Date: 20130214
  Transmission Date: 20140127
  Serious: Yes (Other)
  Sender: FDA-Public Use
  Company Number: US-JNJFOC-20130114327

PATIENT
  Sex: 0

DRUGS (2)
  1. DECITABINE (DECITABINE) LYOPHILIZED POWDER [Suspect]
     Indication: ACUTE MYELOID LEUKAEMIA
     Dosage: 20MG/M2, IN, IN 1 CYCLICAL, INTRAVENOUS
     Route: 042
  2. SAPACITABINE [Suspect]
     Indication: ACUTE MYELOID LEUKAEMIA
     Dosage: 300MG, 2 IN 1 DAY, ORAL
     Route: 048

REACTIONS (3)
  - Lung infection [None]
  - Toxicity to various agents [None]
  - Sepsis [None]
